FAERS Safety Report 10139504 (Version 7)
Quarter: 2015Q3

REPORT INFORMATION
  Report Type: Spontaneous
  Country: US (occurrence: US)
  Receive Date: 20140429
  Receipt Date: 20150831
  Transmission Date: 20151125
  Serious: Yes (Other)
  Sender: FDA-Public Use
  Company Number: US-ASTELLAS-2014US004242

PATIENT
  Sex: Male

DRUGS (2)
  1. XTANDI [Suspect]
     Active Substance: ENZALUTAMIDE
     Indication: PROSTATE CANCER
     Dosage: 160 MG (4X40 MG), ONCE DAILY
     Route: 048
     Dates: start: 20130312
  2. WARFARIN [Interacting]
     Active Substance: WARFARIN
     Indication: PRODUCT USED FOR UNKNOWN INDICATION
     Dosage: UNK, UNKNOWN FREQ.
     Route: 065

REACTIONS (16)
  - Facial pain [Unknown]
  - Ear swelling [Recovered/Resolved]
  - Fatigue [Unknown]
  - Neck pain [Unknown]
  - Micturition urgency [Unknown]
  - Pollakiuria [Unknown]
  - Limb discomfort [Unknown]
  - Erythema [Not Recovered/Not Resolved]
  - Ear pain [Unknown]
  - Prostatic specific antigen increased [Unknown]
  - Deep vein thrombosis [Unknown]
  - International normalised ratio decreased [Unknown]
  - Potentiating drug interaction [Unknown]
  - Swelling face [Unknown]
  - Flushing [Unknown]
  - Local swelling [Recovered/Resolved]
